FAERS Safety Report 6415904-8 (Version None)
Quarter: 2009Q4

REPORT INFORMATION
  Report Type: 
  Country: None (occurrence: None)
  Receive Date: 20091027
  Receipt Date: 20091020
  Transmission Date: 20100525
  Serious: Yes (Life-Threatening, Other)
  Sender: FDA-Public Use
  Company Number: A0805360A

PATIENT
  Age: 87 Year
  Sex: Female

DRUGS (2)
  1. ALTABAX [Suspect]
     Indication: ILL-DEFINED DISORDER
     Dosage: 1APP PER DAY
     Route: 061
     Dates: start: 20090717, end: 20090721
  2. BLOOD PRESSURE MEDICATION [Concomitant]

REACTIONS (5)
  - APPLICATION SITE IRRITATION [None]
  - PAIN [None]
  - SKIN BURNING SENSATION [None]
  - SKIN INJURY [None]
  - THERMAL BURN [None]
